FAERS Safety Report 9080905 (Version 2)
Quarter: 2013Q3

REPORT INFORMATION
  Report Type: Report from Study
  Country: US (occurrence: US)
  Receive Date: 20130130
  Receipt Date: 20130814
  Transmission Date: 20140515
  Serious: Yes (Other)
  Sender: FDA-Public Use
  Company Number: US-ABBOTT-12P-163-0972776-00

PATIENT
  Age: 38 Year
  Sex: Female
  Weight: 96.25 kg

DRUGS (11)
  1. HUMIRA 40 MG/ 0.8 ML PRE-FILLED SYRINGE [Suspect]
     Indication: CROHN^S DISEASE
     Dates: start: 201205
  2. PROTONIX [Concomitant]
     Indication: GASTRIC DISORDER
  3. VITAMIN D [Concomitant]
     Indication: VITAMIN SUPPLEMENTATION
  4. VALTREX [Concomitant]
     Indication: GENITAL HERPES
  5. FOLIC ACID [Concomitant]
     Indication: VITAMIN SUPPLEMENTATION
  6. CLARITIN [Concomitant]
     Indication: HYPERSENSITIVITY
  7. FLONASE [Concomitant]
     Indication: HYPERSENSITIVITY
  8. CYMBALTA [Concomitant]
     Indication: DEPRESSION
  9. NEURONTIN [Concomitant]
     Indication: PAIN
  10. TYLENOL WITH CODEINE [Concomitant]
     Indication: PAIN
  11. ATIVAN [Concomitant]
     Indication: ANXIETY

REACTIONS (2)
  - Abortion spontaneous [Unknown]
  - Vaginal haemorrhage [Not Recovered/Not Resolved]
